FAERS Safety Report 10486359 (Version 2)
Quarter: 2014Q4

REPORT INFORMATION
  Report Type: Spontaneous
  Country: FR (occurrence: FR)
  Receive Date: 20141001
  Receipt Date: 20141010
  Transmission Date: 20150528
  Serious: Yes (Hospitalization, Other)
  Sender: FDA-Public Use
  Company Number: FR-AMGEN-FRASP2014074966

PATIENT
  Age: 70 Year
  Sex: Female
  Weight: 63 kg

DRUGS (4)
  1. ENBREL [Suspect]
     Active Substance: ETANERCEPT
     Indication: PRODUCT USED FOR UNKNOWN INDICATION
     Dosage: 40 MG, SINGLE
     Route: 058
     Dates: start: 20140804, end: 20140804
  2. METOJECT [Concomitant]
     Active Substance: METHOTREXATE SODIUM
     Dosage: 20 MG, WEEKLY
     Route: 058
  3. RIFINAH [Suspect]
     Active Substance: ISONIAZID\RIFAMPIN
     Indication: PRODUCT USED FOR UNKNOWN INDICATION
     Dosage: 2 DF, 1X/DAY
     Route: 048
     Dates: start: 20140703, end: 20140731
  4. RIFINAH [Suspect]
     Active Substance: ISONIAZID\RIFAMPIN
     Dosage: 2 DF, 1X/DAY
     Route: 048
     Dates: start: 20140801, end: 20140805

REACTIONS (12)
  - Drug-induced liver injury [Unknown]
  - Fatigue [Unknown]
  - Viral infection [Unknown]
  - Pyrexia [Recovered/Resolved]
  - Abdominal pain [Recovered/Resolved]
  - Chromaturia [Unknown]
  - Vomiting [Unknown]
  - Hepatocellular injury [Recovering/Resolving]
  - Hyperhidrosis [Unknown]
  - Hepatotoxicity [Unknown]
  - Nausea [Unknown]
  - Spleen disorder [Unknown]

NARRATIVE: CASE EVENT DATE: 2014
